FAERS Safety Report 6179814-6 (Version None)
Quarter: 2009Q2

REPORT INFORMATION
  Report Type: 
  Country: None (occurrence: None)
  Receive Date: 20090505
  Receipt Date: 20090427
  Transmission Date: 20091009
  Serious: Yes (Hospitalization, Other)
  Sender: FDA-Public Use
  Company Number: US-ELI_LILLY_AND_COMPANY-US200903001708

PATIENT
  Sex: Female

DRUGS (1)
  1. FORTEO [Suspect]
     Indication: OSTEOPOROSIS
     Dates: end: 20090305

REACTIONS (5)
  - METASTASES TO LUNG [None]
  - METASTASES TO SKIN [None]
  - METASTATIC NEOPLASM [None]
  - PULMONARY EMBOLISM [None]
  - SARCOMA [None]
